FAERS Safety Report 7051956-2 (Version None)
Quarter: 2010Q4

REPORT INFORMATION
  Report Type: 
  Country: None (occurrence: None)
  Receive Date: 20101019
  Receipt Date: 20101012
  Transmission Date: 20110411
  Serious: Yes (Hospitalization)
  Sender: FDA-Public Use
  Company Number: JP-BAYER-200812650BYL

PATIENT
  Age: 60 Year
  Sex: Male
  Weight: 61 kg

DRUGS (26)
  1. NEXAVAR [Suspect]
     Indication: RENAL CELL CARCINOMA
     Dosage: UNIT DOSE: 200 MG
     Route: 048
     Dates: start: 20091003, end: 20100328
  2. NEXAVAR [Suspect]
     Dosage: UNIT DOSE: 200 MG
     Route: 048
     Dates: start: 20090624, end: 20090925
  3. NEXAVAR [Suspect]
     Dosage: UNIT DOSE: 200 MG
     Route: 048
     Dates: start: 20090220, end: 20090408
  4. NEXAVAR [Suspect]
     Dosage: TOTAL DAILY DOSE: 800 MG  UNIT DOSE: 200 MG
     Route: 048
     Dates: start: 20090523, end: 20090623
  5. NEXAVAR [Suspect]
     Dosage: UNIT DOSE: 200 MG
     Route: 048
     Dates: start: 20081201, end: 20090109
  6. NEXAVAR [Suspect]
     Dosage: TOTAL DAILY DOSE: 800 MG  UNIT DOSE: 200 MG
     Route: 048
     Dates: start: 20081024, end: 20081116
  7. ADRENAL HORMONE PREPARATIONS [Suspect]
     Route: 048
  8. CEFZON [Concomitant]
     Route: 048
     Dates: start: 20081025, end: 20081031
  9. UNASYN [Concomitant]
     Route: 041
     Dates: start: 20081028, end: 20081029
  10. UNASYN [Concomitant]
     Route: 041
     Dates: start: 20081031, end: 20091104
  11. UNASYN [Concomitant]
     Route: 041
     Dates: start: 20081105, end: 20081107
  12. SEISHOKU [Concomitant]
     Route: 041
     Dates: start: 20081105, end: 20081107
  13. SEISHOKU [Concomitant]
     Route: 041
     Dates: start: 20081104, end: 20081104
  14. SEISHOKU [Concomitant]
     Route: 041
     Dates: start: 20081028, end: 20081029
  15. SEISHOKU [Concomitant]
     Route: 041
     Dates: start: 20081031, end: 20081103
  16. MINOCYCLINE HCL [Concomitant]
     Route: 041
     Dates: start: 20081104, end: 20081104
  17. MINOCYCLINE HCL [Concomitant]
     Route: 041
     Dates: start: 20081129, end: 20081219
  18. MINOCYCLINE HCL [Concomitant]
     Route: 041
     Dates: start: 20081105, end: 20081107
  19. RINDERON [Concomitant]
     Route: 048
     Dates: start: 20081025, end: 20081219
  20. RINDERON [Concomitant]
     Route: 048
     Dates: start: 20090220, end: 20090430
  21. RINDERON [Concomitant]
     Route: 048
     Dates: start: 20081220, end: 20090108
  22. RINDERON [Concomitant]
     Route: 048
     Dates: start: 20090109, end: 20090219
  23. PANALDINE [Concomitant]
     Route: 048
     Dates: start: 20081025
  24. METHYCOOL [Concomitant]
     Route: 048
     Dates: start: 20081025
  25. SULPERAZON [Concomitant]
     Route: 041
     Dates: start: 20081115, end: 20081118
  26. TOFRANIL [Concomitant]
     Route: 048
     Dates: start: 20090618, end: 20090814

REACTIONS (9)
  - COLITIS ISCHAEMIC [None]
  - DECUBITUS ULCER [None]
  - ERYTHEMA [None]
  - GASTROINTESTINAL DISORDER [None]
  - HEPATIC FUNCTION ABNORMAL [None]
  - IMPAIRED HEALING [None]
  - NAUSEA [None]
  - PYREXIA [None]
  - VOMITING [None]
